FAERS Safety Report 11745981 (Version 4)
Quarter: 2016Q1

REPORT INFORMATION
  Report Type: Spontaneous
  Country: US (occurrence: US)
  Receive Date: 20151117
  Receipt Date: 20160107
  Transmission Date: 20160525
  Serious: Yes (Hospitalization)
  Sender: FDA-Public Use
  Company Number: US-PFIZER INC-2015354618

PATIENT
  Age: 68 Year
  Sex: Male

DRUGS (3)
  1. ZANTAC [Concomitant]
     Active Substance: RANITIDINE HYDROCHLORIDE
     Dosage: UNK
  2. DEXILANT [Concomitant]
     Active Substance: DEXLANSOPRAZOLE
  3. SUTENT [Suspect]
     Active Substance: SUNITINIB MALATE
     Indication: GASTROINTESTINAL STROMAL TUMOUR
     Dosage: 37.5 MG, DAILY
     Dates: start: 20150805

REACTIONS (8)
  - Oropharyngeal pain [Not Recovered/Not Resolved]
  - Aspartate aminotransferase increased [Unknown]
  - Diarrhoea [Unknown]
  - Pain of skin [Unknown]
  - Skin mass [Unknown]
  - Oral pain [Not Recovered/Not Resolved]
  - Dyspepsia [Not Recovered/Not Resolved]
  - Constipation [Unknown]

NARRATIVE: CASE EVENT DATE: 2015
